FAERS Safety Report 4786352-1 (Version None)
Quarter: 2005Q3

REPORT INFORMATION
  Report Type: 
  Country: None (occurrence: None)
  Receive Date: 20050914
  Receipt Date: 20050217
  Transmission Date: 20060218
  Serious: Yes (Hospitalization)
  Sender: FDA-Public Use
  Company Number: 163-20785-05020309

PATIENT
  Age: 76 Year
  Sex: Female

DRUGS (3)
  1. THALOMID [Suspect]
     Indication: APLASTIC ANAEMIA
     Dosage: 200 MG, DAILY, ORAL;  100 MG, DAILY, ORAL
     Route: 048
     Dates: start: 20041105, end: 20041207
  2. THALOMID [Suspect]
     Indication: APLASTIC ANAEMIA
     Dosage: 200 MG, DAILY, ORAL;  100 MG, DAILY, ORAL
     Route: 048
     Dates: start: 20041208, end: 20050216
  3. PREDNISONE [Concomitant]

REACTIONS (3)
  - CEREBRAL INFARCTION [None]
  - CONDITION AGGRAVATED [None]
  - MENTAL STATUS CHANGES [None]
